FAERS Safety Report 7703799-1 (Version None)
Quarter: 2011Q3

REPORT INFORMATION
  Report Type: 
  Country: None (occurrence: None)
  Receive Date: 20110823
  Receipt Date: 20110812
  Transmission Date: 20111222
  Serious: Yes (Hospitalization)
  Sender: FDA-Public Use
  Company Number: CO-ROCHE-748245

PATIENT
  Sex: Female

DRUGS (1)
  1. MIRCERA [Suspect]
     Route: 058
     Dates: start: 20100802, end: 20101101

REACTIONS (2)
  - CEREBROVASCULAR ACCIDENT [None]
  - HYPERTENSION [None]
